FAERS Safety Report 9869496 (Version 1)
Quarter: 2014Q1

REPORT INFORMATION
  Report Type: Spontaneous
  Country: GB (occurrence: None)
  Receive Date: 20140203
  Receipt Date: 20140203
  Transmission Date: 20141002
  Serious: Yes (Life-Threatening)
  Sender: FDA-Public Use
  Company Number: AUR-APL-2014-00618

PATIENT
  Age: 41 Year
  Sex: 0
  Weight: 50.6 kg

DRUGS (6)
  1. GABAPENTIN (GABAPENTIN) [Suspect]
     Indication: PAIN MANAGEMENT
     Route: 048
     Dates: start: 20131212, end: 20131231
  2. AMITRIPTYLINE (AMITRIPTYLINE) [Concomitant]
  3. BUDESONIDE (BUDESONIDE) [Concomitant]
  4. DIAZEPAM (DIAZEPAM) [Concomitant]
  5. SUMATRIPTAN (SUMATRIPTAN) [Concomitant]
  6. TERBUTALINE (TERBUTALINE) [Concomitant]

REACTIONS (5)
  - Neuroleptic malignant syndrome [None]
  - Psychotic disorder [None]
  - Autonomic nervous system imbalance [None]
  - Hyperhidrosis [None]
  - Musculoskeletal stiffness [None]
